FAERS Safety Report 6373160-3 (Version None)
Quarter: 2009Q3

REPORT INFORMATION
  Report Type: 
  Country: None (occurrence: None)
  Receive Date: 20090924
  Receipt Date: 20081231
  Transmission Date: 20100115
  Serious: No
  Sender: FDA-Public Use
  Company Number: US-ASTRAZENECA-2009UW00185

PATIENT
  Age: 47 Year
  Sex: Female
  Weight: 96.6 kg

DRUGS (1)
  1. SEROQUEL XR [Suspect]
     Indication: PSYCHOTIC DISORDER
     Route: 048
     Dates: start: 20081105, end: 20081111

REACTIONS (2)
  - ACTIVITIES OF DAILY LIVING IMPAIRED [None]
  - SEDATION [None]
